FAERS Safety Report 15934341 (Version 5)
Quarter: 2019Q2

REPORT INFORMATION
  Report Type: Spontaneous
  Country: US (occurrence: US)
  Receive Date: 20190207
  Receipt Date: 20190513
  Transmission Date: 20190711
  Serious: No
  Sender: FDA-Public Use
  Company Number: US-SA-2019SA035146

PATIENT
  Age: 62 Year
  Sex: Female
  Weight: 66 kg

DRUGS (12)
  1. CEFDINIR. [Concomitant]
     Active Substance: CEFDINIR
  2. OSPHENA [Concomitant]
     Active Substance: OSPEMIFENE
  3. OMEPRAZOLE. [Concomitant]
     Active Substance: OMEPRAZOLE
  4. INTRAROSA [Concomitant]
     Active Substance: PRASTERONE
  5. CLOBETASOL PROPIONATE. [Concomitant]
     Active Substance: CLOBETASOL PROPIONATE
  6. METFORMIN HYDROCHLORIDE. [Concomitant]
     Active Substance: METFORMIN HYDROCHLORIDE
  7. PRALUENT [Suspect]
     Active Substance: ALIROCUMAB
     Indication: TYPE IIA HYPERLIPIDAEMIA
     Dosage: 75 MG, QOW
     Route: 058
     Dates: start: 20180801
  8. PHENAZOPYRIDINE HCL [Concomitant]
     Active Substance: PHENAZOPYRIDINE HYDROCHLORIDE
  9. ASPIRIN [ACETYLSALICYLIC ACID] [Concomitant]
     Active Substance: ASPIRIN
  10. FISH OIL [Concomitant]
     Active Substance: FISH OIL
  11. EZETIMIBE. [Concomitant]
     Active Substance: EZETIMIBE
  12. HYOSCYAMINE SULFATE. [Concomitant]
     Active Substance: HYOSCYAMINE SULFATE

REACTIONS (8)
  - Injection site rash [Unknown]
  - Hypersensitivity [Unknown]
  - Injection site erythema [Unknown]
  - Injection site pruritus [Unknown]
  - Glucose tolerance impaired [Unknown]
  - Sleep apnoea syndrome [Unknown]
  - Rash [Unknown]
  - Unevaluable event [Unknown]

NARRATIVE: CASE EVENT DATE: 201812
